FAERS Safety Report 19247323 (Version 4)
Quarter: 2021Q3

REPORT INFORMATION
  Report Type: Report from Study
  Country: US (occurrence: US)
  Receive Date: 20210512
  Receipt Date: 20210817
  Transmission Date: 20211014
  Serious: Yes (Hospitalization, Other)
  Sender: FDA-Public Use
  Company Number: US-BIOVITRUM-2021US4427

PATIENT
  Age: 5 Month
  Sex: Male

DRUGS (5)
  1. KINERET [Suspect]
     Active Substance: ANAKINRA
     Dosage: INCREASED TO 80 MG
  2. KINERET [Suspect]
     Active Substance: ANAKINRA
     Route: 058
     Dates: start: 20210427
  3. NAPROXEN. [Concomitant]
     Active Substance: NAPROXEN
  4. KINERET [Suspect]
     Active Substance: ANAKINRA
     Indication: STILL^S DISEASE
     Route: 058
     Dates: start: 20210427
  5. VITAMIN D [Concomitant]
     Active Substance: VITAMIN D NOS

REACTIONS (8)
  - Pruritus [Unknown]
  - Condition aggravated [Unknown]
  - Still^s disease [Unknown]
  - Injection site erythema [Recovered/Resolved]
  - Off label use [Not Recovered/Not Resolved]
  - Fungal infection [Unknown]
  - Erythema [Unknown]
  - Eczema [Unknown]

NARRATIVE: CASE EVENT DATE: 20210427
